FAERS Safety Report 11971560 (Version 1)
Quarter: 2016Q1

REPORT INFORMATION
  Report Type: Spontaneous
  Country: US (occurrence: US)
  Receive Date: 20160128
  Receipt Date: 20160128
  Transmission Date: 20160526
  Serious: Yes (Hospitalization)
  Sender: FDA-Public Use
  Company Number: US-LPDUSPRD-20160042

PATIENT
  Age: 54 Year
  Sex: Female

DRUGS (2)
  1. DOBUTAMINE [Suspect]
     Active Substance: DOBUTAMINE\DOBUTAMINE HYDROCHLORIDE
     Dosage: MAX DOSE 40MCG/KG/MIN
     Route: 065
  2. ATROPINE SULFATE INJECTION, USP (0101-25) [Suspect]
     Active Substance: ATROPINE SULFATE
     Dosage: 0.25 MG
     Route: 042

REACTIONS (3)
  - Chest pain [Unknown]
  - Transient global amnesia [Recovered/Resolved with Sequelae]
  - Palpitations [Unknown]
